FAERS Safety Report 6738630-4 (Version None)
Quarter: 2010Q2

REPORT INFORMATION
  Report Type: 
  Country: None (occurrence: None)
  Receive Date: 20100524
  Receipt Date: 20100512
  Transmission Date: 20101027
  Serious: Yes (Death, Disabling, Other)
  Sender: FDA-Public Use
  Company Number: IN-PFIZER INC-2010060124

PATIENT
  Age: 70 Year
  Sex: Male

DRUGS (1)
  1. SUTENT [Suspect]
     Indication: METASTATIC RENAL CELL CARCINOMA
     Dosage: 50 MG, 1X/DAY
     Route: 048

REACTIONS (4)
  - APHAGIA [None]
  - ASTHENIA [None]
  - DEATH [None]
  - GAIT DISTURBANCE [None]
